FAERS Safety Report 12555738 (Version 2)
Quarter: 2016Q3

REPORT INFORMATION
  Report Type: Spontaneous
  Country: US (occurrence: US)
  Receive Date: 20160714
  Receipt Date: 20160715
  Transmission Date: 20161109
  Serious: No
  Sender: FDA-Public Use
  Company Number: US-PFIZER INC-2016340428

PATIENT
  Age: 76 Year
  Sex: Female
  Weight: 75.11 kg

DRUGS (4)
  1. CYMBALTA [Suspect]
     Active Substance: DULOXETINE HYDROCHLORIDE
     Indication: NEURALGIA
  2. CYMBALTA [Suspect]
     Active Substance: DULOXETINE HYDROCHLORIDE
     Indication: PAIN
     Dosage: 30 MG, ONCE A DAY
     Dates: start: 2016, end: 2016
  3. LYRICA [Suspect]
     Active Substance: PREGABALIN
     Dosage: 150 MG AT NIGHT AND 150 MG IN THE MORNING
  4. LYRICA [Suspect]
     Active Substance: PREGABALIN
     Indication: FIBROMYALGIA
     Dosage: 200 MG AT NIGHT AND 150 MG IN THE MORNING
     Dates: start: 2016

REACTIONS (9)
  - Weight increased [Recovering/Resolving]
  - Swelling [Unknown]
  - Discomfort [Unknown]
  - Malaise [Unknown]
  - Drug ineffective [Unknown]
  - Product label issue [Unknown]
  - Nausea [Unknown]
  - Oral mucosal blistering [Recovered/Resolved]
  - Intentional product misuse [Unknown]

NARRATIVE: CASE EVENT DATE: 2016
